FAERS Safety Report 4305804-1 (Version None)
Quarter: 2004Q1

REPORT INFORMATION
  Report Type: 
  Country: None (occurrence: None)
  Receive Date: 20040226
  Receipt Date: 20040226
  Transmission Date: 20041129
  Serious: Yes (Life-Threatening, Other)
  Sender: FDA-Public Use
  Company Number: None

PATIENT
  Age: 40 Year
  Sex: Male
  Weight: 72.5755 kg

DRUGS (3)
  1. NARDIL [Suspect]
     Indication: ANXIETY
     Dosage: 15MG 2X DAILY ORAL
     Route: 048
     Dates: start: 19910201, end: 20040101
  2. NARDIL [Suspect]
     Indication: DEPRESSION
     Dosage: 15MG 2X DAILY ORAL
     Route: 048
     Dates: start: 19910201, end: 20040101
  3. NARDIL [Suspect]
     Indication: PAIN
     Dosage: 15MG 2X DAILY ORAL
     Route: 048
     Dates: start: 19910201, end: 20040101

REACTIONS (3)
  - BLOOD PRESSURE INCREASED [None]
  - HEADACHE [None]
  - PHARMACEUTICAL PRODUCT COMPLAINT [None]
